FAERS Safety Report 15159005 (Version 1)
Quarter: 2018Q3

REPORT INFORMATION
  Report Type: Spontaneous
  Country: FI (occurrence: FI)
  Receive Date: 20180718
  Receipt Date: 20180718
  Transmission Date: 20181010
  Serious: Yes (Life-Threatening)
  Sender: FDA-Public Use
  Company Number: FI-PFIZER INC-2018284364

PATIENT

DRUGS (5)
  1. BICAIN [Concomitant]
     Dosage: 1 ML, X1
     Route: 064
     Dates: start: 20180509, end: 20180509
  2. SUFENTA [Concomitant]
     Active Substance: SUFENTANIL CITRATE
     Dosage: 1 ML, X1
     Route: 064
     Dates: start: 20180509, end: 20180509
  3. BRICANYL [Concomitant]
     Active Substance: TERBUTALINE SULFATE
     Route: 064
  4. CYTOTEC [Suspect]
     Active Substance: MISOPROSTOL
     Indication: INDUCED LABOUR
     Route: 064
     Dates: start: 20180508, end: 20180508
  5. SYNTOCINON [Suspect]
     Active Substance: OXYTOCIN
     Indication: INDUCED LABOUR
     Route: 064
     Dates: start: 20180509, end: 20180509

REACTIONS (4)
  - Acidosis [Unknown]
  - Apgar score low [Unknown]
  - Maternal exposure during pregnancy [Unknown]
  - Bradycardia foetal [Unknown]

NARRATIVE: CASE EVENT DATE: 20180508
